FAERS Safety Report 14281929 (Version 8)
Quarter: 2020Q4

REPORT INFORMATION
  Report Type: Report from Study
  Country: None (occurrence: GB)
  Receive Date: 20171213
  Receipt Date: 20201007
  Transmission Date: 20210113
  Serious: Yes (Hospitalization)
  Sender: FDA-Public Use
  Company Number: GB-BAUSCH-BL-2017-033155

PATIENT
  Age: 82 Year
  Sex: Female

DRUGS (62)
  1. DEXAMETHASONE. [Suspect]
     Active Substance: DEXAMETHASONE
     Dosage: 12 MG ON DAYS 1, 2, 4, 5, 8, 9, 11 AND 12 OF EACH 21-DAY CYCLE
     Route: 048
  2. VENETOCLAX. [Suspect]
     Active Substance: VENETOCLAX
     Route: 048
     Dates: start: 20170331, end: 20170607
  3. LANSOPRAZOLE. [Concomitant]
     Active Substance: LANSOPRAZOLE
     Indication: HIATUS HERNIA
     Route: 048
     Dates: start: 201308
  4. ERYTHROPOIETIN [Concomitant]
     Active Substance: ERYTHROPOIETIN
     Indication: ANAEMIA
     Dosage: 12,000 UNITS WEEKLY DOSE
     Route: 058
     Dates: start: 20161118
  5. OSELTAMIVIR PHOSPHATE. [Concomitant]
     Active Substance: OSELTAMIVIR PHOSPHATE
     Indication: INFLUENZA
     Route: 048
     Dates: start: 20170330
  6. GABAPENTIN. [Concomitant]
     Active Substance: GABAPENTIN
     Route: 048
     Dates: start: 20161117
  7. DOXAZOCIN [Concomitant]
     Active Substance: DOXAZOSIN MESYLATE
     Indication: ORTHOSTATIC HYPOTENSION
  8. COCODAMOL [Concomitant]
     Active Substance: ACETAMINOPHEN\CODEINE PHOSPHATE
     Indication: HEADACHE
     Dosage: AS REQUIRED
     Route: 048
     Dates: start: 20170729
  9. ACETAMINOPHEN W/CODEINE PHOSPHATE [Concomitant]
     Active Substance: ACETAMINOPHEN\CODEINE PHOSPHATE
     Indication: HEADACHE
     Route: 048
     Dates: start: 20170729
  10. VENETOCLAX. [Suspect]
     Active Substance: VENETOCLAX
     Dosage: DAILY
     Route: 048
     Dates: start: 20171110
  11. FUROSEMIDE SODIUM [Concomitant]
     Active Substance: FUROSEMIDE SODIUM
     Route: 048
     Dates: start: 201702, end: 20170207
  12. OSELTAMIVIR [Concomitant]
     Active Substance: OSELTAMIVIR
     Route: 048
     Dates: start: 20170330
  13. PAMIDRONATE [Concomitant]
     Active Substance: PAMIDRONATE DISODIUM
     Indication: BONE DISORDER
     Route: 042
  14. DEXAMETHASONE. [Suspect]
     Active Substance: DEXAMETHASONE
     Indication: PLASMA CELL MYELOMA
     Dosage: 12 MG ON DAYS 1, 2, 4, 5, 8, 9, 11 AND 12 OF EACH 21-DAY CYCLE
     Route: 048
     Dates: start: 20170217, end: 20170228
  15. VELCADE [Suspect]
     Active Substance: BORTEZOMIB
     Dosage: LYOPHILIZED?DAYS 1, 4, 8 AND 11 OF EACH 21-DAY CYCLE FOR CYCLES 1-8.
     Route: 058
     Dates: start: 20170106, end: 20170124
  16. ERYTHROPOIETIN [Concomitant]
     Active Substance: ERYTHROPOIETIN
     Dosage: 30000 UNIT, WEEKLY ONCE
     Route: 058
     Dates: start: 20160901, end: 20161117
  17. AMLODIPINE [Concomitant]
     Active Substance: AMLODIPINE BESYLATE
     Indication: HYPERTENSION
     Route: 048
     Dates: start: 20161102
  18. DOXAZOCIN [Concomitant]
     Active Substance: DOXAZOSIN MESYLATE
     Indication: HYPERTENSION
     Route: 048
     Dates: start: 20080211
  19. VELCADE [Suspect]
     Active Substance: BORTEZOMIB
     Dosage: LYOPHILIZED?DAYS 1, 4, 8 AND 11 OF EACH 21-DAY CYCLE FOR CYCLES 1-8
     Route: 058
     Dates: start: 20170211, end: 20170309
  20. VELCADE [Suspect]
     Active Substance: BORTEZOMIB
     Dosage: LYOPHILIZED?DAYS 1, 4, 8 AND 11 OF EACH 21-DAY CYCLE FOR CYCLES 1-8
     Route: 058
     Dates: start: 20170331, end: 20170607
  21. VELCADE [Suspect]
     Active Substance: BORTEZOMIB
     Dosage: LYOPHILIZED POWDER?DAYS 1, 4, 8, AND 11 OF EACH 21 DAY CYCLE FOR CYCLE 9 AND BEYOND
     Route: 058
     Dates: start: 20170630, end: 20170714
  22. VENETOCLAX. [Suspect]
     Active Substance: VENETOCLAX
     Indication: PLASMA CELL MYELOMA
     Dosage: 1 UNKNOWN UNIT
     Route: 048
     Dates: start: 20170106, end: 20170124
  23. GABAPENTIN. [Concomitant]
     Active Substance: GABAPENTIN
     Indication: BURSITIS
     Route: 048
     Dates: start: 20161117
  24. OSELTAMIVIR [Concomitant]
     Active Substance: OSELTAMIVIR
     Indication: INFLUENZA
     Route: 048
     Dates: start: 20170330
  25. DEXAMETHASONE. [Suspect]
     Active Substance: DEXAMETHASONE
     Dosage: 12 MG ON DAYS 1, 2, 4, 5, 8, 9, 11 AND 12 OF EACH 21-DAY CYCLE
     Route: 048
     Dates: start: 20170407, end: 20170429
  26. VELCADE [Suspect]
     Active Substance: BORTEZOMIB
     Dosage: LYOPHILIZED POWDER?DAYS 1, 4, 8, AND 11 OF EACH 21 DAY CYCLE FOR CYCLE 9 AND BEYOND
     Route: 058
     Dates: start: 20150512, end: 20170605
  27. VELCADE [Suspect]
     Active Substance: BORTEZOMIB
     Dosage: LYOPHILIZED POWDER?DAYS 1, 4, 8, AND 11 OF EACH 21 DAY CYCLE FOR CYCLES 1-8
     Route: 058
     Dates: start: 20170106, end: 20170227
  28. VENETOCLAX. [Suspect]
     Active Substance: VENETOCLAX
     Route: 048
     Dates: start: 20170630, end: 20171026
  29. POTASSIUM [Concomitant]
     Active Substance: POTASSIUM
     Indication: BLOOD POTASSIUM DECREASED
     Route: 048
     Dates: start: 20170207
  30. DOMPERIDONE MALEATE [Concomitant]
     Active Substance: DOMPERIDONE MALEATE
     Indication: NAUSEA
     Route: 048
     Dates: start: 20170224
  31. OXYBUTYNIN HYDROCHLORIDE [Concomitant]
     Active Substance: OXYBUTYNIN CHLORIDE
     Indication: INCONTINENCE
     Route: 048
     Dates: start: 20160602
  32. ASPIRIN. [Concomitant]
     Active Substance: ASPIRIN
     Indication: PROPHYLAXIS
     Route: 048
     Dates: start: 20150529
  33. PAMIDRONATE [Concomitant]
     Active Substance: PAMIDRONATE DISODIUM
     Route: 042
  34. DEXAMETHASONE. [Suspect]
     Active Substance: DEXAMETHASONE
     Dosage: 20 MG ON DAYS 1, 2, 4, 5, 8, 9, 11 AND 12 OF EACH 21-DAY CYCLE
     Route: 048
     Dates: start: 20170106, end: 20170117
  35. DEXAMETHASONE. [Suspect]
     Active Substance: DEXAMETHASONE
     Route: 048
     Dates: start: 20171101
  36. AMLODIPINE BESILATE [Concomitant]
     Active Substance: AMLODIPINE BESYLATE
     Indication: HYPERTENSION
     Route: 048
     Dates: start: 20161102
  37. LANSOPRAZOLE. [Concomitant]
     Active Substance: LANSOPRAZOLE
     Route: 048
     Dates: start: 20130815
  38. DOMPERIDONE MALEATE [Concomitant]
     Active Substance: DOMPERIDONE MALEATE
     Indication: PROPHYLAXIS OF NAUSEA AND VOMITING
     Route: 048
     Dates: start: 20170109, end: 20170223
  39. ACETYLSALICYLIC ACID [Concomitant]
     Active Substance: ASPIRIN
     Indication: THROMBOSIS PROPHYLAXIS
     Route: 048
     Dates: start: 20170529
  40. DOMPERIDONE [Concomitant]
     Active Substance: DOMPERIDONE
     Indication: PROPHYLAXIS OF NAUSEA AND VOMITING
     Route: 048
     Dates: start: 20170224
  41. DOMPERIDONE [Concomitant]
     Active Substance: DOMPERIDONE
     Indication: NAUSEA
     Route: 048
     Dates: start: 20170109, end: 20170223
  42. OXYBUTYNIN CHLORIDE. [Concomitant]
     Active Substance: OXYBUTYNIN CHLORIDE
     Indication: INCONTINENCE
     Route: 048
     Dates: start: 20160602
  43. DEXAMETHASONE. [Suspect]
     Active Substance: DEXAMETHASONE
     Route: 048
  44. VELCADE [Suspect]
     Active Substance: BORTEZOMIB
     Dosage: LYOPHILIZED POWDER?DAYS 1, 8, 15 AND 22 OF EACH 35-DAY CYCLE FOR CYCLES 9 AND BEYOND
     Route: 058
     Dates: start: 20170728, end: 20171020
  45. LOPERAMIDE HYDROCHLORIDE. [Concomitant]
     Active Substance: LOPERAMIDE HYDROCHLORIDE
     Indication: DIARRHOEA
     Dosage: PRN (AS NEEDED)
     Route: 048
     Dates: start: 20170512
  46. PANADEINE (ACETAMINOPHEN (+) CODEINE PHOSPHATE) [Concomitant]
     Indication: HEADACHE
     Route: 048
     Dates: start: 20170729
  47. LEKOVIT CA [Concomitant]
     Active Substance: CALCIUM CARBONATE\CHOLECALCIFEROL
     Indication: PROPHYLAXIS
     Route: 048
     Dates: start: 20101202
  48. FUROSEMIDE. [Concomitant]
     Active Substance: FUROSEMIDE
     Indication: OEDEMA PERIPHERAL
     Route: 048
     Dates: start: 20170208
  49. EPOETIN [Concomitant]
     Active Substance: ERYTHROPOIETIN
     Indication: ANAEMIA
     Dosage: 30000 UNIT, 1 WEEK
     Route: 058
     Dates: start: 20160901, end: 20161117
  50. DEXAMETHASONE. [Suspect]
     Active Substance: DEXAMETHASONE
     Indication: PLASMA CELL MYELOMA
     Dosage: 8 MG ON DAYS 1, 2, 8, 9, 15, 16, 22 AND 23 OF EACH 35-DAY CYCLE
     Route: 048
  51. DEXAMETHASONE. [Suspect]
     Active Substance: DEXAMETHASONE
     Dosage: 8 MG ON DAYS 1, 2, 4, 5, 8, 9, 11 AND 12 OF EACH 21-DAY CYCLE
     Route: 048
     Dates: start: 20170512, end: 20170613
  52. DEXAMETHASONE. [Suspect]
     Active Substance: DEXAMETHASONE
     Route: 048
     Dates: start: 20170630, end: 20171021
  53. VELCADE [Suspect]
     Active Substance: BORTEZOMIB
     Indication: PLASMA CELL MYELOMA
     Dosage: LYOPHILIZED POWDER?DAYS 1, 8, 15 AND 22 OF EACH 35-DAY CYCLE FOR CYCLES 9 AND BEYOND
     Route: 058
     Dates: start: 20171110
  54. VENETOCLAX. [Suspect]
     Active Substance: VENETOCLAX
     Dosage: 1 UNKNOWN UNIT
     Route: 048
     Dates: start: 20170211, end: 20170309
  55. FUROSEMIDE SODIUM [Concomitant]
     Active Substance: FUROSEMIDE SODIUM
     Indication: OEDEMA PERIPHERAL
     Route: 048
     Dates: start: 20170208
  56. PARACETAMOL [Concomitant]
     Active Substance: ACETAMINOPHEN
     Indication: HEADACHE
     Route: 048
     Dates: start: 20170729
  57. ASPIRIN. [Concomitant]
     Active Substance: ASPIRIN
     Indication: THROMBOSIS PROPHYLAXIS
     Route: 048
     Dates: start: 20170529
  58. LOPERAMIDE [Concomitant]
     Active Substance: LOPERAMIDE
     Indication: DIARRHOEA
     Dosage: AS NECESSARY
     Route: 048
     Dates: start: 20170512
  59. FUROSEMIDE. [Concomitant]
     Active Substance: FUROSEMIDE
     Route: 048
     Dates: start: 201702, end: 20170207
  60. ACETAMINOPHEN. [Concomitant]
     Active Substance: ACETAMINOPHEN
     Indication: HEADACHE
     Route: 048
     Dates: start: 20170729
  61. EPOETIN [Concomitant]
     Active Substance: ERYTHROPOIETIN
     Dosage: 12000 UNIT, PER 1 WEEK
     Route: 058
     Dates: start: 20161118
  62. OXYBUTYNIN. [Concomitant]
     Active Substance: OXYBUTYNIN CHLORIDE
     Indication: INCONTINENCE
     Route: 048
     Dates: start: 20160602

REACTIONS (2)
  - Anaemia [Recovered/Resolved]
  - Lower respiratory tract infection [Recovered/Resolved]

NARRATIVE: CASE EVENT DATE: 20171026
